FAERS Safety Report 25418898 (Version 1)
Quarter: 2025Q2

REPORT INFORMATION
  Report Type: Spontaneous
  Country: FR (occurrence: FR)
  Receive Date: 20250610
  Receipt Date: 20250610
  Transmission Date: 20250716
  Serious: Yes (Other)
  Sender: MERCK SHARP & DOHME LLC
  Company Number: None

PATIENT
  Age: 75 Year
  Sex: Male
  Weight: 70 kg

DRUGS (2)
  1. KEYTRUDA [Suspect]
     Active Substance: PEMBROLIZUMAB
     Indication: Bladder transitional cell carcinoma
     Route: 042
     Dates: start: 20250305
  2. PADCEV [Suspect]
     Active Substance: ENFORTUMAB VEDOTIN-EJFV
     Indication: Bladder transitional cell carcinoma
     Route: 042
     Dates: start: 20250305

REACTIONS (6)
  - Oropharyngeal candidiasis [Recovering/Resolving]
  - Skin toxicity [Recovering/Resolving]
  - Lung disorder [Recovering/Resolving]
  - Abnormal loss of weight [Recovering/Resolving]
  - Lacrimation increased [Recovering/Resolving]
  - Alopecia [Recovering/Resolving]

NARRATIVE: CASE EVENT DATE: 20250401
